FAERS Safety Report 4456851-0 (Version None)
Quarter: 2004Q3

REPORT INFORMATION
  Report Type: 
  Country: None (occurrence: None)
  Receive Date: 20040923
  Receipt Date: 20040913
  Transmission Date: 20050211
  Serious: Yes (Other)
  Sender: FDA-Public Use
  Company Number: HQWYE423719AUG04

PATIENT
  Age: 19 Year
  Sex: Female

DRUGS (2)
  1. ENBREL [Suspect]
     Indication: POLYARTHRITIS
  2. ADALIMUMAB [Concomitant]

REACTIONS (8)
  - ARTHRITIS [None]
  - BURSITIS [None]
  - CONDITION AGGRAVATED [None]
  - IRIS ADHESIONS [None]
  - IRITIS [None]
  - JOINT EFFUSION [None]
  - MACULAR OEDEMA [None]
  - VITREOUS OPACITIES [None]
